FAERS Safety Report 7921410-1 (Version None)
Quarter: 2011Q4

REPORT INFORMATION
  Report Type: 
  Country: None (occurrence: None)
  Receive Date: 20111117
  Receipt Date: 20111114
  Transmission Date: 20120403
  Serious: Yes (Life-Threatening, Hospitalization, Other)
  Sender: FDA-Public Use
  Company Number: JP-B.I. PHARMACEUTICALS,INC./RIDGEFIELD-2011-BP-24648NB

PATIENT
  Sex: Male

DRUGS (11)
  1. SM/TAKA-DIASTASE_NATURAL AG ENTS COMBINED DRUG [Concomitant]
     Dosage: 3.9 G
     Route: 048
  2. PRADAXA [Suspect]
     Dosage: 220 MG
     Route: 048
     Dates: start: 20110422, end: 20111008
  3. OLMESARTAN MEDOXOMIL [Concomitant]
     Dosage: 10 MG
     Route: 048
     Dates: end: 20111008
  4. FAMOTIDINE D [Concomitant]
     Dosage: 20 MG
     Route: 048
  5. NESINA [Suspect]
     Dosage: 25 MG
     Route: 048
     Dates: start: 20110422, end: 20111007
  6. METFORMIN HCL [Concomitant]
     Dosage: 750 MG
     Route: 048
     Dates: end: 20111007
  7. MAGNESIUM OXIDE [Concomitant]
     Dosage: 1 G
     Route: 048
  8. HARNAL D [Concomitant]
     Dosage: 0.1 MG
     Route: 048
     Dates: end: 20111006
  9. PURSENNID [Concomitant]
     Dosage: 24 MG
     Route: 048
  10. ETIZOLAM [Concomitant]
     Dosage: 0.5 MG
     Route: 048
     Dates: end: 20111008
  11. ALLOPURINOL [Concomitant]
     Dosage: 100 MG
     Route: 048
     Dates: end: 20111008

REACTIONS (2)
  - HAEMOPTYSIS [None]
  - INTERSTITIAL LUNG DISEASE [None]
